FAERS Safety Report 7275958-6 (Version None)
Quarter: 2011Q1

REPORT INFORMATION
  Report Type: 
  Country: None (occurrence: None)
  Receive Date: 20110204
  Receipt Date: 20110201
  Transmission Date: 20110831
  Serious: Yes (Hospitalization)
  Sender: FDA-Public Use
  Company Number: A0911176A

PATIENT
  Sex: Female

DRUGS (3)
  1. UNKNOWN [Concomitant]
  2. TYKERB [Suspect]
     Indication: BREAST CANCER
     Route: 048
  3. XELODA [Suspect]

REACTIONS (1)
  - PANCREATITIS [None]
